FAERS Safety Report 8035649-0 (Version None)
Quarter: 2011Q4

REPORT INFORMATION
  Report Type: 
  Country: None (occurrence: None)
  Receive Date: 20111222
  Receipt Date: 20111213
  Transmission Date: 20120403
  Serious: Yes (Other)
  Sender: FDA-Public Use
  Company Number: DE-1186603

PATIENT
  Age: 23 Year
  Sex: Male

DRUGS (2)
  1. MAXITROL [Suspect]
     Indication: CONJUNCTIVITIS
     Dosage: OPHTHALMIC
     Route: 047
  2. MAXITROL [Suspect]
     Indication: CONJUNCTIVITIS
     Dosage: OPHTHALMIC
     Route: 047

REACTIONS (3)
  - HEADACHE [None]
  - INTRAOCULAR PRESSURE INCREASED [None]
  - GLAUCOMA [None]
